FAERS Safety Report 10136223 (Version 5)
Quarter: 2014Q3

REPORT INFORMATION
  Report Type: Spontaneous
  Country: GR (occurrence: GR)
  Receive Date: 20140429
  Receipt Date: 20140717
  Transmission Date: 20150326
  Serious: Yes (Other)
  Sender: FDA-Public Use
  Company Number: GR-AMGEN-GRCSP2014030372

PATIENT
  Age: 75 Year
  Sex: Male
  Weight: 100 kg

DRUGS (3)
  1. VECTIBIX [Suspect]
     Active Substance: PANITUMUMAB
     Indication: COLORECTAL CANCER METASTATIC
     Dosage: 6 MG/KG (400-500), ONCE EVERY 15 DAYS
     Route: 065
     Dates: start: 20140103
  2. XELODA [Concomitant]
     Active Substance: CAPECITABINE
     Indication: COLORECTAL CANCER METASTATIC
     Dosage: UNK UNK, EVERY 15 DAYS
     Dates: start: 20131216
  3. ELOXATIN [Concomitant]
     Active Substance: OXALIPLATIN
     Indication: COLORECTAL CANCER METASTATIC
     Dosage: UNK UNK, EVERY 15 DAYS
     Dates: start: 20131216

REACTIONS (10)
  - Musculoskeletal pain [Not Recovered/Not Resolved]
  - Upper limb fracture [Unknown]
  - Pleural effusion [Unknown]
  - Condition aggravated [Unknown]
  - Metastases to bone [Unknown]
  - Metastases to liver [Unknown]
  - Pain [Not Recovered/Not Resolved]
  - Metastases to lung [Unknown]
  - Rash [Recovered/Resolved]
  - Medication error [Unknown]

NARRATIVE: CASE EVENT DATE: 2014
